FAERS Safety Report 23923926 (Version 1)
Quarter: 2024Q2

REPORT INFORMATION
  Report Type: Spontaneous
  Country: US (occurrence: US)
  Receive Date: 20240531
  Receipt Date: 20240531
  Transmission Date: 20240716
  Serious: No
  Sender: FDA-Public Use
  Company Number: US-002147023-NVSC2024US114377

PATIENT
  Sex: Female

DRUGS (1)
  1. LEQVIO [Suspect]
     Active Substance: INCLISIRAN SODIUM
     Indication: Product used for unknown indication
     Dosage: 284 MG, ONCE/SINGLE, (284 MG / 1.5 ML)
     Route: 058
     Dates: start: 20240522

REACTIONS (3)
  - Diarrhoea [Unknown]
  - Myalgia [Unknown]
  - Pain [Unknown]

NARRATIVE: CASE EVENT DATE: 20240522
